FAERS Safety Report 6645242-X (Version None)
Quarter: 2010Q1

REPORT INFORMATION
  Report Type: 
  Country: None (occurrence: None)
  Receive Date: 20100322
  Receipt Date: 20100226
  Transmission Date: 20100710
  Serious: Yes (Other)
  Sender: FDA-Public Use
  Company Number: PHHY2010JP06134

PATIENT
  Sex: Female

DRUGS (1)
  1. LAMISIL [Suspect]
     Dosage: 125 MG/ DAY
     Route: 048
     Dates: start: 20090812, end: 20100127

REACTIONS (3)
  - BLOOD LACTATE DEHYDROGENASE INCREASED [None]
  - DIFFERENTIAL WHITE BLOOD CELL COUNT ABNORMAL [None]
  - NEUTROPHIL COUNT DECREASED [None]
